FAERS Safety Report 4939584-3 (Version None)
Quarter: 2006Q1

REPORT INFORMATION
  Report Type: 
  Country: None (occurrence: None)
  Receive Date: 20060307
  Receipt Date: 20060227
  Transmission Date: 20060701
  Serious: Yes (Hospitalization)
  Sender: FDA-Public Use
  Company Number: 2006029002

PATIENT
  Age: 70 Year
  Sex: Female

DRUGS (8)
  1. CABERGOLINE [Suspect]
     Indication: PARKINSON'S DISEASE
     Dosage: 5 MG (DAILY), ORAL
     Route: 048
     Dates: end: 20060220
  2. DUREKAL (POTASSIUM CHLORIDE) [Concomitant]
  3. MOVICOL (MACROGOL, POTASSIUM CHLORIDE, SODIUM BICARBONATE, SODIUM CHLO [Concomitant]
  4. MADOPAR (BENSERAZIDE HYDROCHLORIDE, LEVODOPA) [Concomitant]
  5. EFFORTIL (ETILEFRINE HYDROCHLORIDE) [Concomitant]
  6. VESIX (FUROSEMIDE) [Concomitant]
  7. TENOX (TEMAZEPAM) [Concomitant]
  8. TRIMOPAN (TRIMETHOPRIM) [Concomitant]

REACTIONS (16)
  - ACUTE RESPIRATORY DISTRESS SYNDROME [None]
  - ANAEMIA [None]
  - ATELECTASIS [None]
  - CARDIAC FAILURE [None]
  - CROHN'S DISEASE [None]
  - DEHYDRATION [None]
  - FATIGUE [None]
  - HYPOTONIA [None]
  - INFECTION [None]
  - MELAENA [None]
  - PLEURAL DISORDER [None]
  - PLEURAL EFFUSION [None]
  - PLEURAL FIBROSIS [None]
  - PYREXIA [None]
  - RENAL FAILURE ACUTE [None]
  - URINARY RETENTION [None]
